FAERS Safety Report 8786783 (Version 2)
Quarter: 2015Q2

REPORT INFORMATION
  Report Type: Report from Study
  Country: US (occurrence: US)
  Receive Date: 20120914
  Receipt Date: 20150625
  Transmission Date: 20150821
  Serious: Yes (Death)
  Sender: FDA-Public Use
  Company Number: US-ROCHE-1126599

PATIENT
  Sex: Female

DRUGS (5)
  1. TAGAMET [Concomitant]
     Active Substance: CIMETIDINE
     Route: 065
  2. AVASTIN [Suspect]
     Active Substance: BEVACIZUMAB
     Indication: BREAST CANCER FEMALE
     Route: 042
     Dates: start: 20050523, end: 20060207
  3. ARANESP [Concomitant]
     Active Substance: DARBEPOETIN ALFA
     Route: 065
  4. TAXOL [Suspect]
     Active Substance: PACLITAXEL
     Indication: BREAST CANCER FEMALE
     Route: 042
     Dates: start: 20050516
  5. ALOXI [Concomitant]
     Active Substance: PALONOSETRON HYDROCHLORIDE
     Route: 065

REACTIONS (13)
  - Telangiectasia [Unknown]
  - Incontinence [Unknown]
  - Fatigue [Unknown]
  - Spider naevus [Unknown]
  - Scar [Unknown]
  - Constipation [Unknown]
  - Bladder spasm [Unknown]
  - Death [Fatal]
  - Urinary tract infection [Unknown]
  - Off label use [Unknown]
  - Oedema peripheral [Unknown]
  - Dysuria [Unknown]
  - Pain [Unknown]
